FAERS Safety Report 7748788-6 (Version None)
Quarter: 2011Q3

REPORT INFORMATION
  Report Type: 
  Country: None (occurrence: None)
  Receive Date: 20110913
  Receipt Date: 20110913
  Transmission Date: 20111222
  Serious: Yes (Hospitalization)
  Sender: FDA-Public Use
  Company Number: None

PATIENT
  Age: 66 Year
  Sex: Male
  Weight: 110.5 kg

DRUGS (2)
  1. LISINOPRIL [Suspect]
     Indication: HYPERTENSION
     Dosage: 20 MG EVERY DAY PO
     Route: 048
     Dates: start: 20020621, end: 20101021
  2. SULFAMETHOXAZOLE AND TRIMETHOPRIM [Suspect]
     Indication: BURSITIS
     Dosage: 2 TAB BID PO
     Route: 048
     Dates: start: 20101020, end: 20101021

REACTIONS (1)
  - ANGIOEDEMA [None]
